FAERS Safety Report 8228460-9 (Version None)
Quarter: 2012Q1

REPORT INFORMATION
  Report Type: 
  Country: None (occurrence: None)
  Receive Date: 20120322
  Receipt Date: 20110801
  Transmission Date: 20120608
  Serious: Yes (Life-Threatening, Hospitalization)
  Sender: FDA-Public Use
  Company Number: US-BRISTOL-MYERS SQUIBB COMPANY-15838477

PATIENT
  Age: 55 Year
  Sex: Male

DRUGS (8)
  1. SOLU-MEDROL [Suspect]
     Indication: PREMEDICATION
     Route: 040
     Dates: start: 20110607, end: 20110607
  2. ASPIRIN [Concomitant]
     Route: 048
  3. LEVOFLOXACIN [Concomitant]
     Route: 048
     Dates: end: 20110607
  4. ACETAMINOPHEN [Concomitant]
     Route: 048
  5. ERBITUX [Suspect]
     Indication: TONGUE NEOPLASM MALIGNANT STAGE UNSPECIFIED
     Route: 042
     Dates: start: 20110607, end: 20110607
  6. ATARAX [Suspect]
     Indication: PREMEDICATION
     Dates: start: 20110607, end: 20110607
  7. PREDNISOLONE [Concomitant]
     Dosage: TOTAL 60MG.
     Route: 048
     Dates: start: 20110601, end: 20110607
  8. DURAGESIC-100 [Concomitant]
     Route: 003

REACTIONS (1)
  - ANAPHYLACTIC SHOCK [None]
